FAERS Safety Report 11662272 (Version 1)
Quarter: 2015Q4

REPORT INFORMATION
  Report Type: Spontaneous
  Country: FR (occurrence: FR)
  Receive Date: 20151027
  Receipt Date: 20151027
  Transmission Date: 20160304
  Serious: Yes (Hospitalization)
  Sender: FDA-Public Use
  Company Number: PHHY2015FR135224

PATIENT
  Age: 12 Year
  Sex: Male

DRUGS (3)
  1. IBUPROFEN SANDOZ [Suspect]
     Active Substance: IBUPROFEN
     Indication: TESTICULAR PAIN
     Dosage: 1 DF, QD
     Route: 048
     Dates: start: 20150817, end: 20150821
  2. DOLIPRANE [Concomitant]
     Active Substance: ACETAMINOPHEN
     Indication: PRODUCT USED FOR UNKNOWN INDICATION
     Route: 065
     Dates: start: 20150817
  3. OMEPRAZOLE SANDOZ//OMEPRAZOLE [Concomitant]
     Indication: PRODUCT USED FOR UNKNOWN INDICATION
     Route: 065
     Dates: start: 20150817

REACTIONS (5)
  - Subdural empyema [Recovering/Resolving]
  - Cellulitis streptococcal [Recovering/Resolving]
  - Periorbital abscess [Recovering/Resolving]
  - Cellulitis staphylococcal [Recovering/Resolving]
  - Cellulitis orbital [Recovering/Resolving]

NARRATIVE: CASE EVENT DATE: 20150822
